FAERS Safety Report 17225541 (Version 1)
Quarter: 2020Q1

REPORT INFORMATION
  Report Type: Report from Study
  Country: BR (occurrence: BR)
  Receive Date: 20200102
  Receipt Date: 20200102
  Transmission Date: 20200409
  Serious: Yes (Other)
  Sender: FDA-Public Use
  Company Number: BR-JNJFOC-20191244854

PATIENT
  Age: 46 Year
  Sex: Female
  Weight: 105 kg

DRUGS (12)
  1. PANTOPRAZOLE [Concomitant]
     Active Substance: PANTOPRAZOLE
     Route: 065
  2. LEFLUNOMIDE. [Concomitant]
     Active Substance: LEFLUNOMIDE
     Indication: RHEUMATOID ARTHRITIS
     Route: 065
  3. DOMPERIDONE [Concomitant]
     Active Substance: DOMPERIDONE
     Route: 065
  4. REMICADE [Suspect]
     Active Substance: INFLIXIMAB
     Indication: PSORIATIC ARTHROPATHY
     Route: 042
     Dates: start: 20170125, end: 20191219
  5. AMATO [Concomitant]
     Active Substance: TOPIRAMATE
  6. SPIRONOLACTONE. [Concomitant]
     Active Substance: SPIRONOLACTONE
     Route: 065
  7. FLUOXETINE [Concomitant]
     Active Substance: FLUOXETINE HYDROCHLORIDE
     Route: 065
  8. TRAMADOL. [Concomitant]
     Active Substance: TRAMADOL
  9. NORTRIPTYLINE [Concomitant]
     Active Substance: NORTRIPTYLINE
     Route: 065
  10. PREDNISONE. [Concomitant]
     Active Substance: PREDNISONE
     Route: 065
  11. LOSARTAN. [Concomitant]
     Active Substance: LOSARTAN
     Route: 065
  12. METOPROLOL. [Concomitant]
     Active Substance: METOPROLOL
     Route: 065

REACTIONS (7)
  - Exostosis [Unknown]
  - Migraine [Unknown]
  - Pyoderma gangrenosum [Unknown]
  - Psoriasis [Unknown]
  - Osteoarthritis [Unknown]
  - Hernia [Unknown]
  - Skin fissures [Unknown]

NARRATIVE: CASE EVENT DATE: 201906
